FAERS Safety Report 9040006 (Version 1)
Quarter: 2013Q1

REPORT INFORMATION
  Report Type: Spontaneous
  Country: BE (occurrence: BE)
  Receive Date: 20130130
  Receipt Date: 20130130
  Transmission Date: 20140127
  Serious: Yes (Other)
  Sender: FDA-Public Use
  Company Number: PHHY2012BE102252

PATIENT
  Age: 45 Year
  Sex: Female

DRUGS (2)
  1. TASIGNA [Suspect]
     Indication: CHRONIC MYELOID LEUKAEMIA
     Dosage: 300 MG, BID
     Route: 048
     Dates: start: 20121016, end: 20121130
  2. TASIGNA [Suspect]
     Dosage: 150 MG, QD
     Route: 048
     Dates: start: 20121228

REACTIONS (10)
  - Respiratory failure [Recovering/Resolving]
  - Respiratory distress [Recovering/Resolving]
  - Cardiac failure [Recovering/Resolving]
  - Dyspnoea [Recovering/Resolving]
  - Orthopnoea [Recovering/Resolving]
  - Cough [Recovering/Resolving]
  - Pancytopenia [Recovering/Resolving]
  - Pulmonary oedema [Recovering/Resolving]
  - Hypertension [Recovering/Resolving]
  - Pyrexia [Recovering/Resolving]
